FAERS Safety Report 4353706-7 (Version None)
Quarter: 2004Q2

REPORT INFORMATION
  Report Type: 
  Country: None (occurrence: None)
  Receive Date: 20040430
  Receipt Date: 20040415
  Transmission Date: 20050107
  Serious: Yes (Death)
  Sender: FDA-Public Use
  Company Number: S04-USA-02243-01

PATIENT
  Age: 50 Year
  Sex: Male

DRUGS (8)
  1. LEXAPRO [Suspect]
     Indication: DEPRESSION
     Dosage: 20 MG QD PO
     Route: 048
     Dates: start: 20031101, end: 20040401
  2. OXYCONTIN [Suspect]
     Indication: BACK PAIN
     Dates: end: 20040401
  3. OXYCONTIN [Suspect]
     Indication: BACK PAIN
     Dosage: 50 MG PO
     Route: 048
  4. OXYCONTIN IR [Suspect]
     Indication: BACK PAIN
     Dates: end: 20040401
  5. ELAVIL [Concomitant]
  6. SEROQUEL [Concomitant]
  7. NEURONTIN [Concomitant]
  8. PREVACID [Concomitant]

REACTIONS (1)
  - DRUG TOXICITY [None]
